FAERS Safety Report 22370210 (Version 1)
Quarter: 2023Q2

REPORT INFORMATION
  Report Type: Other
  Country: CN (occurrence: None)
  Receive Date: 20230526
  Receipt Date: 20230526
  Transmission Date: 20230721
  Serious: Yes (Other)
  Sender: FDA-Public Use
  Company Number: CN-ROCHE-3356221

PATIENT

DRUGS (6)
  1. BEVACIZUMAB [Suspect]
     Active Substance: BEVACIZUMAB
     Indication: Non-small cell lung cancer
     Dosage: DAY 1 OF EACH CYCLE EVERY 3 WEEKS
     Route: 042
  2. SINTILIMAB [Suspect]
     Active Substance: SINTILIMAB
     Indication: Non-small cell lung cancer
     Dosage: DAY 1 OF EACH CYCLE EVERY 3 WEEKS
     Route: 042
  3. TISLELIZUMAB [Suspect]
     Active Substance: TISLELIZUMAB
     Indication: Non-small cell lung cancer
     Dosage: DAY 1 OF EACH CYCLE EVERY 3 WEEKS
     Route: 042
  4. PEMETREXED [Suspect]
     Active Substance: PEMETREXED
     Indication: Non-small cell lung cancer
     Dosage: DAY 1 OF EACH CYCLE EVERY 3 WEEKS
     Route: 042
  5. CISPLATIN [Suspect]
     Active Substance: CISPLATIN
     Indication: Non-small cell lung cancer
     Dosage: DAY 1 OF EACH CYCLE EVERY 3 WEEKS,USED ONLY FOR THE FIRST 4 CYCLES
     Route: 042
  6. CARBOPLATIN [Suspect]
     Active Substance: CARBOPLATIN
     Indication: Non-small cell lung cancer
     Dosage: UNDER THE CURVE = 5,DAY 1 OF EACH CYCLE EVERY 3 WEEKS,USED ONLY FOR THE FIRST 4 CYCLES
     Route: 042

REACTIONS (11)
  - Myelosuppression [Unknown]
  - Hepatic function abnormal [Unknown]
  - Decreased appetite [Unknown]
  - Vomiting [Unknown]
  - Asthenia [Unknown]
  - Pneumonia [Unknown]
  - Thyroid disorder [Unknown]
  - Nausea [Unknown]
  - Blood creatinine increased [Unknown]
  - Hypertension [Unknown]
  - Rash [Unknown]
